FAERS Safety Report 4805242-9 (Version None)
Quarter: 2005Q4

REPORT INFORMATION
  Report Type: 
  Country: None (occurrence: None)
  Receive Date: 20051020
  Receipt Date: 20050718
  Transmission Date: 20060501
  Serious: Yes (Hospitalization)
  Sender: FDA-Public Use
  Company Number: US-MERCK-0507USA02350

PATIENT
  Age: 71 Year
  Sex: Male
  Weight: 107 kg

DRUGS (6)
  1. ASPIRIN [Concomitant]
     Route: 065
  2. VIOXX [Suspect]
     Indication: SPINAL COLUMN STENOSIS
     Route: 048
     Dates: start: 19991001, end: 20041101
  3. XANAX [Concomitant]
     Indication: ANXIETY
     Route: 065
  4. DRAMAMINE [Concomitant]
     Indication: MOTION SICKNESS
     Route: 065
  5. INDERAL [Concomitant]
     Indication: CARDIAC DISORDER
     Route: 065
     Dates: start: 19750101, end: 20000101
  6. LOPRESSOR [Concomitant]
     Indication: CARDIAC DISORDER
     Route: 065
     Dates: start: 19750101, end: 20000101

REACTIONS (4)
  - CARDIAC VALVE DISEASE [None]
  - CORONARY ARTERY DISEASE [None]
  - DEEP VEIN THROMBOSIS [None]
  - HYPERTENSION [None]
